FAERS Safety Report 9922961 (Version 1)
Quarter: 2014Q1

REPORT INFORMATION
  Report Type: Spontaneous
  Country: US (occurrence: US)
  Receive Date: 20140225
  Receipt Date: 20140225
  Transmission Date: 20141002
  Serious: No
  Sender: FDA-Public Use
  Company Number: US-B.I. PHARMACEUTICALS,INC./RIDGEFIELD-2013-BI-11707YA

PATIENT
  Sex: Male

DRUGS (2)
  1. TAMSULOSIN CAPSULES [Suspect]
     Route: 065
  2. ANDRODERM [Suspect]
     Route: 062

REACTIONS (1)
  - Urinary tract obstruction [Unknown]
